FAERS Safety Report 7741292-0 (Version None)
Quarter: 2011Q3

REPORT INFORMATION
  Report Type: 
  Country: None (occurrence: None)
  Receive Date: 20110909
  Receipt Date: 20110901
  Transmission Date: 20111222
  Serious: Yes (Life-Threatening, Hospitalization)
  Sender: FDA-Public Use
  Company Number: US-ELI_LILLY_AND_COMPANY-US201109000785

PATIENT
  Sex: Female
  Weight: 117.91 kg

DRUGS (11)
  1. BYETTA [Suspect]
     Dosage: 10 UG, BID
     Route: 058
  2. AVAPRO [Concomitant]
     Indication: HYPERTENSION
     Dosage: 300 MG, QD
     Route: 048
  3. HYDROCHLOROTHIAZIDE [Concomitant]
     Indication: HYPERTENSION
     Dosage: 10 MG, QD
  4. BYETTA [Suspect]
     Dosage: 5 UG, BID
     Dates: end: 20110406
  5. BYETTA [Suspect]
     Dosage: 5 UG, BID
     Dates: start: 20110610
  6. BYETTA [Suspect]
     Dosage: 10 UG, EACH MORNING
     Route: 058
  7. FLUOXETINE [Concomitant]
     Indication: PREMENSTRUAL SYNDROME
     Dosage: 20 MG, QOD
     Route: 048
  8. NORVASC [Concomitant]
     Indication: HYPERTENSION
     Dosage: 10 MG, EACH EVENING
     Route: 048
  9. BYETTA [Suspect]
     Indication: TYPE 2 DIABETES MELLITUS
     Dosage: 5 UG, BID
     Route: 058
  10. BYETTA [Suspect]
     Dosage: 5 UG, EACH EVENING
  11. GLUCOPHAGE [Concomitant]
     Indication: TYPE 2 DIABETES MELLITUS
     Dosage: UNK, BID
     Route: 048
     Dates: end: 20110419

REACTIONS (15)
  - PNEUMONIA [None]
  - DYSPNOEA [None]
  - OROPHARYNGEAL PAIN [None]
  - EAR INFECTION [None]
  - WEIGHT FLUCTUATION [None]
  - GLYCOSYLATED HAEMOGLOBIN INCREASED [None]
  - GENERAL PHYSICAL HEALTH DETERIORATION [None]
  - BLOOD GLUCOSE INCREASED [None]
  - ASTHMA [None]
  - EAR PAIN [None]
  - HUNGER [None]
  - ENDOTRACHEAL INTUBATION [None]
  - LUNG DISORDER [None]
  - NAUSEA [None]
  - OFF LABEL USE [None]
